FAERS Safety Report 7082658-4 (Version None)
Quarter: 2010Q4

REPORT INFORMATION
  Report Type: 
  Country: None (occurrence: None)
  Receive Date: 20101104
  Receipt Date: 20101027
  Transmission Date: 20110411
  Serious: Yes (Hospitalization)
  Sender: FDA-Public Use
  Company Number: FR-JNJFOC-20100903764

PATIENT
  Age: 43 Year
  Sex: Female

DRUGS (4)
  1. PREZISTA [Suspect]
     Indication: HIV INFECTION
     Route: 048
  2. TRUVADA [Concomitant]
     Indication: HIV INFECTION
     Route: 048
  3. DEPAKENE [Concomitant]
     Indication: EPILEPSY
     Route: 048
  4. NORVIR [Concomitant]
     Indication: HIV INFECTION
     Route: 048

REACTIONS (4)
  - CAESAREAN SECTION [None]
  - DRUG EXPOSURE DURING PREGNANCY [None]
  - EPILEPSY [None]
  - PREMATURE LABOUR [None]
